FAERS Safety Report 19574047 (Version 1)
Quarter: 2021Q3

REPORT INFORMATION
  Report Type: Spontaneous
  Country: NL (occurrence: NL)
  Receive Date: 20210718
  Receipt Date: 20210718
  Transmission Date: 20211014
  Serious: Yes (Hospitalization, Other)
  Sender: FDA-Public Use
  Company Number: NL-VELOXIS PHARMACEUTICALS-2020VELNL-001125

PATIENT
  Age: 60 Year
  Sex: Female

DRUGS (14)
  1. ENVARSUS XR [Suspect]
     Active Substance: TACROLIMUS
     Indication: CROHN^S DISEASE
     Dosage: UNK
     Route: 065
     Dates: start: 20170101
  2. PREDNISOLONE. [Suspect]
     Active Substance: PREDNISOLONE
     Indication: IMMUNOSUPPRESSION
  3. MYCOPHENOLATE MOFETIL. [Suspect]
     Active Substance: MYCOPHENOLATE MOFETIL
     Indication: RENAL TRANSPLANT
     Dosage: UNK
     Route: 065
  4. MYCOPHENOLATE MOFETIL. [Suspect]
     Active Substance: MYCOPHENOLATE MOFETIL
     Indication: CROHN^S DISEASE
     Dosage: UNK
     Route: 065
     Dates: start: 2005, end: 2017
  5. 6?MERCAPTOPURINE MONOHYDRATE [Suspect]
     Active Substance: MERCAPTOPURINE
     Indication: CROHN^S DISEASE
     Dosage: UNK
     Route: 065
     Dates: start: 2018, end: 2018
  6. ENVARSUS XR [Suspect]
     Active Substance: TACROLIMUS
     Indication: RENAL TRANSPLANT
  7. PREDNISOLONE. [Suspect]
     Active Substance: PREDNISOLONE
     Indication: CROHN^S DISEASE
     Dosage: HIGHER DOSES
     Route: 065
     Dates: start: 2017
  8. INFLECTRA [Suspect]
     Active Substance: INFLIXIMAB-DYYB
     Dosage: UNK
     Route: 065
     Dates: start: 201901, end: 2019
  9. AZATHIOPRINE [AZATHIOPRINE SODIUM] [Suspect]
     Active Substance: AZATHIOPRINE SODIUM
     Indication: CROHN^S DISEASE
     Dosage: UNK
     Route: 065
     Dates: start: 2018, end: 2018
  10. PREDNISOLONE. [Suspect]
     Active Substance: PREDNISOLONE
     Indication: RENAL TRANSPLANT
     Dosage: UNK
     Route: 065
     Dates: start: 2005, end: 2017
  11. INFLECTRA [Suspect]
     Active Substance: INFLIXIMAB-DYYB
     Dosage: UNK
     Route: 065
     Dates: start: 201811
  12. MYCOPHENOLATE MOFETIL. [Suspect]
     Active Substance: MYCOPHENOLATE MOFETIL
     Indication: IMMUNOSUPPRESSION
  13. INFLECTRA [Suspect]
     Active Substance: INFLIXIMAB-DYYB
     Indication: CROHN^S DISEASE
     Dosage: UNK
     Route: 065
     Dates: start: 201809
  14. ENVARSUS XR [Suspect]
     Active Substance: TACROLIMUS
     Indication: IMMUNOSUPPRESSION

REACTIONS (6)
  - Cholangitis [Recovered/Resolved]
  - Histoplasmosis disseminated [Recovered/Resolved]
  - Granulomatous liver disease [Recovered/Resolved]
  - Enterocolitis [Recovered/Resolved]
  - Pulmonary granuloma [Recovered/Resolved]
  - Off label use [Unknown]

NARRATIVE: CASE EVENT DATE: 2017
